FAERS Safety Report 14735475 (Version 3)
Quarter: 2018Q2

REPORT INFORMATION
  Report Type: Spontaneous
  Country: IT (occurrence: IT)
  Receive Date: 20180409
  Receipt Date: 20180528
  Transmission Date: 20180711
  Serious: Yes (Death, Life-Threatening)
  Sender: FDA-Public Use
  Company Number: PHHY2018IT055710

PATIENT
  Age: 64 Year
  Sex: Male

DRUGS (4)
  1. BORTEZOMIB [Suspect]
     Active Substance: BORTEZOMIB
     Indication: CONGENITAL MYOPATHY
     Dosage: UNK
     Route: 065
  2. HUMAN IMMUNOGLOBULIN [Suspect]
     Active Substance: HUMAN IMMUNOGLOBULIN G
     Indication: CONGENITAL MYOPATHY
     Dosage: 2000 MG/KG, QMO
     Route: 042
  3. MELPHALAN. [Suspect]
     Active Substance: MELPHALAN
     Indication: CONGENITAL MYOPATHY
     Dosage: UNK
     Route: 065
  4. PREDNISONE. [Suspect]
     Active Substance: PREDNISONE
     Indication: CONGENITAL MYOPATHY
     Dosage: 0.5 TO 1 MG/KG/QD
     Route: 042

REACTIONS (2)
  - Respiratory disorder [Fatal]
  - Drug ineffective for unapproved indication [Fatal]
